FAERS Safety Report 19004168 (Version 16)
Quarter: 2023Q2

REPORT INFORMATION
  Report Type: Report from Study
  Country: ES (occurrence: ES)
  Receive Date: 20210312
  Receipt Date: 20230627
  Transmission Date: 20230722
  Serious: Yes (Hospitalization, Other)
  Sender: FDA-Public Use
  Company Number: ES-ROCHE-2757043

PATIENT
  Age: 61 Year
  Sex: Female
  Weight: 61 kg

DRUGS (45)
  1. BEVACIZUMAB [Suspect]
     Active Substance: BEVACIZUMAB
     Indication: Non-small cell lung cancer
     Dosage: 458 MG
     Route: 042
     Dates: start: 20201229
  2. BEVACIZUMAB [Suspect]
     Active Substance: BEVACIZUMAB
     Indication: Lung cancer metastatic
  3. CARBOPLATIN [Suspect]
     Active Substance: CARBOPLATIN
     Indication: Non-small cell lung cancer
     Dosage: 514 MG
     Route: 065
     Dates: start: 20201229
  4. CARBOPLATIN [Suspect]
     Active Substance: CARBOPLATIN
     Indication: Lung cancer metastatic
  5. PACLITAXEL [Suspect]
     Active Substance: PACLITAXEL
     Indication: Non-small cell lung cancer
     Dosage: 325 MG
     Route: 065
     Dates: start: 20201229
  6. PACLITAXEL [Suspect]
     Active Substance: PACLITAXEL
     Indication: Lung cancer metastatic
  7. ATEZOLIZUMAB [Suspect]
     Active Substance: ATEZOLIZUMAB
     Indication: Non-small cell lung cancer
     Dosage: NEXT DOSE 11FEB2021, MOST RECENT DOSE OF STUDY DRUG PRIOR TO MUCOSITIS 21JAN2021, 23AUG2021
     Route: 042
     Dates: start: 20201229
  8. ATEZOLIZUMAB [Suspect]
     Active Substance: ATEZOLIZUMAB
     Indication: Lung cancer metastatic
     Dosage: 1200 MG, EVERY 3 WEEKS
     Route: 042
     Dates: start: 20210121
  9. ONDANSETRON [Concomitant]
     Active Substance: ONDANSETRON
     Indication: Prophylaxis
     Dosage: 0.33 DF, DAILY
     Dates: start: 20201228, end: 20210101
  10. ONDANSETRON [Concomitant]
     Active Substance: ONDANSETRON
     Dosage: UNK
     Dates: start: 20210127, end: 20210131
  11. ONDANSETRON [Concomitant]
     Active Substance: ONDANSETRON
     Dosage: 0.33 DF, 3X/DAY
     Dates: start: 20210325, end: 20220221
  12. GABAPENTIN [Concomitant]
     Active Substance: GABAPENTIN
     Indication: Prophylaxis
     Dosage: 0.33 DF, DAILY
     Dates: start: 20201229
  13. ACETAMINOPHEN [Concomitant]
     Active Substance: ACETAMINOPHEN
     Indication: Prophylaxis
     Dosage: 0.33 DF, DAILY
     Dates: start: 20201229
  14. CALCIUM CARBONATE\CHOLECALCIFEROL [Concomitant]
     Active Substance: CALCIUM CARBONATE\CHOLECALCIFEROL
     Dosage: 1 DF, DAILY
     Dates: start: 20201229
  15. LORAZEPAM [Concomitant]
     Active Substance: LORAZEPAM
     Indication: Prophylaxis
     Dosage: 0.33 DF, DAILY
     Dates: start: 20201229
  16. DEXAMETHASONE [Concomitant]
     Active Substance: DEXAMETHASONE
     Indication: Prophylaxis
     Dosage: 0.5 DF, DAILY
     Dates: start: 20201229
  17. METAMIZOL [Concomitant]
     Active Substance: METAMIZOLE SODIUM
     Indication: Prophylaxis
     Dosage: 2 G,FREQ: 0.33 UNITS, DAILY
     Dates: start: 20201229
  18. DESVENLAFAXINE [Concomitant]
     Active Substance: DESVENLAFAXINE
     Indication: Prophylaxis
     Dosage: 1 DF, DAILY
     Dates: start: 20201229
  19. MST-30 [Concomitant]
     Indication: Prophylaxis
     Dosage: 0.5 DF, DAILY
     Dates: start: 20201229
  20. MORPHINE [Concomitant]
     Active Substance: MORPHINE
     Indication: Prophylaxis
     Dosage: 0.5 DF, DAILY
     Dates: start: 20201229
  21. PRISTIQ EXTENDED-RELEASE [Concomitant]
     Active Substance: DESVENLAFAXINE SUCCINATE
     Indication: Prophylaxis
     Dosage: 1 DF, DAILY
     Dates: start: 20201229
  22. METHYLPREDNISOLONE [Concomitant]
     Active Substance: METHYLPREDNISOLONE
     Dosage: 1 DF, DAILY
     Dates: start: 20210923
  23. PANTOPRAZOLE [Concomitant]
     Active Substance: PANTOPRAZOLE
     Indication: Prophylaxis
     Dosage: 0.5 DF, DAILY
     Dates: start: 20210430
  24. COVID-19 VACCINE [Concomitant]
     Indication: Prophylaxis
     Dosage: DOSE NUMBER UNKNOWN, SINGLE
     Dates: start: 202105, end: 202105
  25. CIPROFLOXACIN [Concomitant]
     Active Substance: CIPROFLOXACIN
     Indication: Prophylaxis
     Dosage: 0.5 DF, DAILY
     Dates: start: 20210531, end: 20210607
  26. CIPROFLOXACIN [Concomitant]
     Active Substance: CIPROFLOXACIN
     Dosage: 0.5 DF, DAILY
     Dates: start: 20210621, end: 20210628
  27. PREGABALIN [Concomitant]
     Active Substance: PREGABALIN
     Dosage: UNK
     Dates: start: 20210415
  28. NYSTATIN [Concomitant]
     Active Substance: NYSTATIN
     Dosage: 0.33, 3X/DAY
     Dates: start: 20201229
  29. NYSTATIN [Concomitant]
     Active Substance: NYSTATIN
     Dosage: 0.5, DAILY
     Dates: start: 20210430
  30. NYSTATIN [Concomitant]
     Active Substance: NYSTATIN
     Dosage: UNK, 1X/DAY
     Dates: start: 20210506
  31. BUTYLSCOPOLAMINE [Concomitant]
     Active Substance: BUTYLSCOPOLAMINE
     Dosage: 0.33 DF, DAILY
     Dates: start: 20210506
  32. INFLUENZA VIRUS VACCINE [Concomitant]
     Active Substance: INFLUENZA VIRUS VACCINE
     Indication: Prophylaxis
     Dosage: DOSE NUMBER UNKNOWN, SINGLE
     Dates: start: 202201, end: 202201
  33. BUSCAPINA [Concomitant]
     Dosage: UNK
     Dates: start: 20210506
  34. DEXAMETHASONE [Concomitant]
     Active Substance: DEXAMETHASONE
     Indication: Prophylaxis
     Dosage: 0.5, DAILY
     Dates: start: 20201229
  35. ATROVENT [Concomitant]
     Active Substance: IPRATROPIUM BROMIDE
     Indication: Prophylaxis
     Dosage: UNK
     Dates: start: 20220221
  36. FOSAPREPITANT [Concomitant]
     Active Substance: FOSAPREPITANT
     Indication: Prophylaxis
     Dosage: UNK
     Dates: start: 20210211, end: 20210211
  37. LOPERAMIDE [Concomitant]
     Active Substance: LOPERAMIDE
     Dosage: UNK
     Dates: start: 20220503, end: 20220503
  38. MONUROL [Concomitant]
     Active Substance: FOSFOMYCIN TROMETHAMINE
     Dosage: 1X/DAY
     Dates: start: 20220221, end: 20220223
  39. ATEZOLIZUMAB [Concomitant]
     Active Substance: ATEZOLIZUMAB
     Dosage: UNK
     Route: 065
  40. ZOLEDRONIC ACID [Concomitant]
     Active Substance: ZOLEDRONIC ACID
     Indication: Prophylaxis
     Dosage: UNK
     Dates: start: 20210121, end: 20210211
  41. ZOLEDRONIC ACID [Concomitant]
     Active Substance: ZOLEDRONIC ACID
     Dosage: UNK
     Dates: start: 20210304, end: 20220131
  42. ALMAGATE [Concomitant]
     Active Substance: ALMAGATE
     Indication: Prophylaxis
     Dosage: 3X/DAY
     Dates: start: 20210621, end: 20220221
  43. PIPERACILLIN SODIUM\TAZOBACTAM SODIUM [Concomitant]
     Active Substance: PIPERACILLIN SODIUM\TAZOBACTAM SODIUM
     Indication: Prophylaxis
     Dosage: 1X/DAY
     Dates: end: 20220413
  44. PIPERACILLIN SODIUM\TAZOBACTAM SODIUM [Concomitant]
     Active Substance: PIPERACILLIN SODIUM\TAZOBACTAM SODIUM
     Dosage: 0.33, 3X/DAY
     Dates: start: 20210621, end: 20220221
  45. PIPERACILLIN SODIUM\TAZOBACTAM SODIUM [Concomitant]
     Active Substance: PIPERACILLIN SODIUM\TAZOBACTAM SODIUM
     Dosage: UNK
     Dates: start: 20220513, end: 20220613

REACTIONS (9)
  - Vomiting [Recovered/Resolved]
  - Abdominal pain [Recovered/Resolved]
  - Oral candidiasis [Recovered/Resolved]
  - Nausea [Recovered/Resolved]
  - Nausea [Recovered/Resolved]
  - Haematuria [Recovered/Resolved]
  - Anxiety [Recovered/Resolved]
  - Mucosal inflammation [Recovered/Resolved]
  - Back pain [Not Recovered/Not Resolved]

NARRATIVE: CASE EVENT DATE: 20210104
